FAERS Safety Report 13696498 (Version 1)
Quarter: 2017Q2

REPORT INFORMATION
  Report Type: Spontaneous
  Country: FR (occurrence: FR)
  Receive Date: 20170628
  Receipt Date: 20170628
  Transmission Date: 20170830
  Serious: Yes (Life-Threatening, Hospitalization, Other)
  Sender: FDA-Public Use
  Company Number: FR-BRISTOL-MYERS SQUIBB COMPANY-BMS-2017-055571

PATIENT
  Age: 83 Year
  Sex: Male

DRUGS (3)
  1. SOTALEX [Concomitant]
     Active Substance: SOTALOL
     Indication: HYPERTENSION
     Route: 065
  2. ELIQUIS [Suspect]
     Active Substance: APIXABAN
     Indication: CEREBROVASCULAR ACCIDENT PROPHYLAXIS
     Dosage: UNK
     Route: 048
  3. PERINDOPRIL [Concomitant]
     Active Substance: PERINDOPRIL
     Indication: HYPERTENSION
     Route: 065

REACTIONS (3)
  - Haemorrhagic stroke [Recovering/Resolving]
  - Hypertension [Recovering/Resolving]
  - Cerebellar haematoma [Recovering/Resolving]
